FAERS Safety Report 6957411-X (Version None)
Quarter: 2010Q3

REPORT INFORMATION
  Report Type: 
  Country: None (occurrence: None)
  Receive Date: 20100826
  Receipt Date: 20100816
  Transmission Date: 20110219
  Serious: Yes (Life-Threatening, Hospitalization)
  Sender: FDA-Public Use
  Company Number: UTC-001349

PATIENT
  Age: 64 Year
  Sex: Male
  Weight: 95.9 kg

DRUGS (12)
  1. TYVASO [Suspect]
     Indication: PULMONARY HYPERTENSION
     Dosage: (18 MCG,1 D),INHALATION
     Route: 055
     Dates: start: 20100810
  2. ASPIRIN [Concomitant]
  3. LISINOPRIL [Concomitant]
  4. SINGULAIR [Concomitant]
  5. NAPROSYN (NAPROXEN) (TABLETS) [Concomitant]
  6. IMDUR [Concomitant]
  7. MULTIVITAMIN (MULTIVITAMIN /00831701/) [Concomitant]
  8. FISH OIL (FISH OIL) [Concomitant]
  9. CALCIUM (CALCIUM) [Concomitant]
  10. ADVAIR (SERETIDE /01420901/) (INHALANT) [Concomitant]
  11. LASIX [Concomitant]
  12. OXYGEN (OXYGEN) [Concomitant]

REACTIONS (1)
  - DYSPNOEA [None]
